FAERS Safety Report 18986087 (Version 2)
Quarter: 2021Q2

REPORT INFORMATION
  Report Type: Spontaneous
  Country: CA (occurrence: CA)
  Receive Date: 20210309
  Receipt Date: 20210414
  Transmission Date: 20210717
  Serious: Yes (Other)
  Sender: FDA-Public Use
  Company Number: CA-TOLMAR, INC.-21CA025773

PATIENT
  Sex: Male

DRUGS (1)
  1. ELIGARD [Suspect]
     Active Substance: LEUPROLIDE ACETATE
     Indication: METASTATIC NEOPLASM
     Dosage: 45 MG, Q 6 MONTH
     Route: 065
     Dates: start: 20201102

REACTIONS (3)
  - Prostatic specific antigen increased [Unknown]
  - Blood testosterone abnormal [Unknown]
  - Bone pain [Unknown]
